FAERS Safety Report 19014889 (Version 1)
Quarter: 2021Q1

REPORT INFORMATION
  Report Type: Spontaneous
  Country: US (occurrence: US)
  Receive Date: 20210317
  Receipt Date: 20210317
  Transmission Date: 20210420
  Serious: No
  Sender: FDA-Public Use
  Company Number: US-SA-2021SA087701

PATIENT
  Age: 66 Year
  Sex: Male

DRUGS (11)
  1. NEXIUM [Concomitant]
     Active Substance: ESOMEPRAZOLE MAGNESIUM
  2. VASCEPA [Concomitant]
     Active Substance: ICOSAPENT ETHYL
  3. LANTUS [Concomitant]
     Active Substance: INSULIN GLARGINE
  4. VITAMINS NOS [Concomitant]
     Active Substance: VITAMINS
  5. LEXAPRO [Concomitant]
     Active Substance: ESCITALOPRAM OXALATE
  6. XYOSTED [Concomitant]
     Active Substance: TESTOSTERONE ENANTHATE
  7. DUPIXENT [Suspect]
     Active Substance: DUPILUMAB
     Indication: DERMATITIS ATOPIC
     Dosage: 300 MG, QOW
     Route: 058
     Dates: start: 20180327
  8. ATIVAN [Concomitant]
     Active Substance: LORAZEPAM
  9. CLOBETASOL [Concomitant]
     Active Substance: CLOBETASOL
  10. METFORMIN [Concomitant]
     Active Substance: METFORMIN HYDROCHLORIDE
  11. ZOLPIDEM [Concomitant]
     Active Substance: ZOLPIDEM TARTRATE

REACTIONS (1)
  - Rash [Not Recovered/Not Resolved]
